FAERS Safety Report 14703299 (Version 3)
Quarter: 2019Q2

REPORT INFORMATION
  Report Type: Spontaneous
  Country: US (occurrence: US)
  Receive Date: 20180402
  Receipt Date: 20190419
  Transmission Date: 20190711
  Serious: Yes (Hospitalization, Other)
  Sender: FDA-Public Use
  Company Number: US-ASTRAZENECA-2018SE37645

PATIENT
  Age: 24422 Day
  Sex: Female
  Weight: 50.8 kg

DRUGS (134)
  1. OMEPRAZOLE. [Suspect]
     Active Substance: OMEPRAZOLE
     Indication: GASTROOESOPHAGEAL REFLUX DISEASE
     Dosage: GENERIC
     Route: 065
     Dates: end: 2014
  2. PANTOPRAZOLE [Suspect]
     Active Substance: PANTOPRAZOLE
     Indication: GASTROOESOPHAGEAL REFLUX DISEASE
     Dosage: GENERIC
     Route: 065
     Dates: start: 2012, end: 2016
  3. PLAVIX [Concomitant]
     Active Substance: CLOPIDOGREL BISULFATE
     Indication: ANTICOAGULANT THERAPY
     Dates: start: 2014
  4. SIMVASTATIN. [Concomitant]
     Active Substance: SIMVASTATIN
     Indication: BLOOD CHOLESTEROL DECREASED
     Dates: start: 2014
  5. BENICAR [Concomitant]
     Active Substance: OLMESARTAN MEDOXOMIL
     Indication: HYPERTENSION
     Dates: start: 2013, end: 2014
  6. CIPROFLOXACIN HCL [Concomitant]
     Active Substance: CIPROFLOXACIN HYDROCHLORIDE
     Indication: BLOOD CHOLESTEROL DECREASED
     Dates: start: 2014
  7. CLINDESSE [Concomitant]
     Active Substance: CLINDAMYCIN PHOSPHATE
     Indication: BLOOD CHOLESTEROL DECREASED
     Dates: start: 2014
  8. CODEINE SULFATE. [Concomitant]
     Active Substance: CODEINE SULFATE
     Indication: ANALGESIC THERAPY
     Dates: start: 2015, end: 2016
  9. DIPHENOXYLATE-ATROPINE [Concomitant]
     Active Substance: ATROPINE\DIPHENOXYLATE
     Indication: ANTIDIARRHOEAL SUPPORTIVE CARE
     Dates: start: 2015, end: 2016
  10. DOXYCYCLINE HYCLATE. [Concomitant]
     Active Substance: DOXYCYCLINE HYCLATE
     Indication: PSORIASIS
     Dates: start: 2015
  11. FLUVIRIN NOS [Concomitant]
     Active Substance: INFLUENZA VIRUS VACCINE
     Indication: ANTIVIRAL PROPHYLAXIS
     Dates: start: 2010, end: 2011
  12. HYDRALAZINE [Concomitant]
     Active Substance: HYDRALAZINE HYDROCHLORIDE
     Indication: HYPERTENSION
     Dates: start: 2013
  13. ISOSORBIDE MONONITRATE. [Concomitant]
     Active Substance: ISOSORBIDE MONONITRATE
     Indication: HYPERTENSION
     Dates: start: 2007, end: 2008
  14. MAGNESIUM OXIDE. [Concomitant]
     Active Substance: MAGNESIUM OXIDE
     Indication: MINERAL SUPPLEMENTATION
     Dates: start: 2014, end: 2016
  15. MEPHYTON [Concomitant]
     Active Substance: PHYTONADIONE
     Indication: VITAMIN A
     Dates: start: 2016
  16. NITROQUICK [Concomitant]
     Active Substance: NITROGLYCERIN
     Indication: CORONARY ARTERY DISEASE
     Dates: start: 2007, end: 2009
  17. POTASSIUM CHLORIDE. [Concomitant]
     Active Substance: POTASSIUM CHLORIDE
     Indication: MINERAL SUPPLEMENTATION
     Dates: start: 2015
  18. PREMARIN [Concomitant]
     Active Substance: ESTROGENS, CONJUGATED
     Indication: HORMONE THERAPY
     Dates: start: 2006
  19. ZOLPIDEM TARTRATE. [Concomitant]
     Active Substance: ZOLPIDEM TARTRATE
     Indication: INSOMNIA
     Dates: start: 2016
  20. PIROXICAM. [Concomitant]
     Active Substance: PIROXICAM
     Indication: ANTIINFLAMMATORY THERAPY
     Dates: start: 2008
  21. SIMVASTATIN. [Concomitant]
     Active Substance: SIMVASTATIN
     Indication: BLOOD CHOLESTEROL DECREASED
     Dates: start: 2008
  22. SULFAMETHOXAZOLE [Concomitant]
     Active Substance: SULFAMETHOXAZOLE
     Indication: ANTIBIOTIC THERAPY
     Dates: start: 2012
  23. ATORVASTATIN CALCIUM. [Concomitant]
     Active Substance: ATORVASTATIN CALCIUM
     Indication: BLOOD CHOLESTEROL DECREASED
     Dates: start: 2014, end: 2016
  24. BOOSTRIX [Concomitant]
     Active Substance: TETANUS TOXOID, REDUCED DIPHTHERIA TOXOID AND ACELLULAR PERTUSSIS VACCINE, ADSORBED ANTIGENS
     Indication: HYPERTENSION
     Dates: start: 2016
  25. CRESTOR [Concomitant]
     Active Substance: ROSUVASTATIN CALCIUM
     Indication: BLOOD CHOLESTEROL DECREASED
     Dates: start: 2009, end: 2010
  26. DRONABINOL. [Concomitant]
     Active Substance: DRONABINOL
     Indication: PSORIASIS
     Dates: start: 2015, end: 2016
  27. HYDROCODONE-APAP [Concomitant]
     Active Substance: ACETAMINOPHEN\HYDROCODONE
     Indication: ANALGESIC THERAPY
     Dates: start: 2007
  28. LEVOTHYROXINE SODIUM. [Concomitant]
     Active Substance: LEVOTHYROXINE SODIUM
     Indication: HYPOTHYROIDISM
     Dates: start: 2011, end: 2016
  29. METFORMIN HCL [Concomitant]
     Active Substance: METFORMIN HYDROCHLORIDE
     Indication: DIABETES MELLITUS
     Dates: start: 2010, end: 2015
  30. NOVOLOG [Concomitant]
     Active Substance: INSULIN ASPART
     Indication: DIABETES MELLITUS
     Dates: start: 2010, end: 2012
  31. PAROXETINE HYDROCHLORIDE. [Concomitant]
     Active Substance: PAROXETINE HYDROCHLORIDE
     Indication: DEPRESSION
     Dates: start: 2012, end: 2016
  32. POTASSIUM CHLORIDE. [Concomitant]
     Active Substance: POTASSIUM CHLORIDE
     Indication: MINERAL SUPPLEMENTATION
     Dates: start: 2008
  33. TERCONAZOLE. [Concomitant]
     Active Substance: TERCONAZOLE
     Indication: FUNGAL INFECTION
     Dates: start: 2006
  34. VAGIFEM [Concomitant]
     Active Substance: ESTRADIOL
     Indication: HORMONE THERAPY
     Dates: start: 2008
  35. ZOSTAVAX [Concomitant]
     Active Substance: VARICELLA-ZOSTER VIRUS STRAIN OKA/MERCK LIVE ANTIGEN
     Dates: start: 2014
  36. NEXIUM [Suspect]
     Active Substance: ESOMEPRAZOLE MAGNESIUM
     Indication: GASTROOESOPHAGEAL REFLUX DISEASE
     Route: 048
     Dates: start: 200608
  37. OMEPRAZOLE. [Suspect]
     Active Substance: OMEPRAZOLE
     Indication: GASTROOESOPHAGEAL REFLUX DISEASE
     Dosage: GENERIC
     Route: 065
     Dates: start: 2006, end: 2008
  38. LIPITOR [Concomitant]
     Active Substance: ATORVASTATIN CALCIUM
     Indication: BLOOD CHOLESTEROL DECREASED
     Dates: start: 2009, end: 2011
  39. PIROXICAM. [Concomitant]
     Active Substance: PIROXICAM
     Indication: ANTIINFLAMMATORY THERAPY
     Dates: start: 2014
  40. ACETAMINOPHEN-CODEINE [Concomitant]
     Active Substance: ACETAMINOPHEN\CODEINE PHOSPHATE
     Indication: ANALGESIC THERAPY
     Dates: start: 2010, end: 2014
  41. AZITHROMYCIN ANHYDROUS. [Concomitant]
     Active Substance: AZITHROMYCIN ANHYDROUS
     Indication: BLOOD CHOLESTEROL DECREASED
     Dates: start: 2011, end: 2013
  42. BENICAR [Concomitant]
     Active Substance: OLMESARTAN MEDOXOMIL
     Indication: HYPERTENSION
     Dates: start: 2011, end: 2013
  43. CALCIUM ACETATE. [Concomitant]
     Active Substance: CALCIUM ACETATE
     Indication: HYPERTENSION
     Dates: start: 2016
  44. CEFAZOLIN SODIUM. [Concomitant]
     Active Substance: CEFAZOLIN SODIUM
     Indication: HYPERTENSION
     Dates: start: 2016
  45. CELECOXIB. [Concomitant]
     Active Substance: CELECOXIB
     Indication: ARTHRITIS
     Dates: start: 2015, end: 2016
  46. CEFALEXIN [Concomitant]
     Active Substance: CEPHALEXIN
     Indication: ARTHRITIS
     Dates: start: 2016
  47. IBUPROFEN. [Concomitant]
     Active Substance: IBUPROFEN
     Indication: ANALGESIC THERAPY
     Dates: start: 2014
  48. LOPERAMIDE [Concomitant]
     Active Substance: LOPERAMIDE
     Indication: ANTIDIARRHOEAL SUPPORTIVE CARE
     Dates: start: 2014, end: 2016
  49. OXYCODONE [Concomitant]
     Active Substance: OXYCODONE
     Indication: ANALGESIC THERAPY
     Dates: start: 2014
  50. PRANDIN [Concomitant]
     Active Substance: REPAGLINIDE
     Indication: DIABETES MELLITUS
     Dates: start: 2009, end: 2010
  51. TOPICORT [Concomitant]
     Active Substance: DESOXIMETASONE
     Indication: FUNGAL INFECTION
     Dates: start: 2011
  52. RANITIDINE. [Concomitant]
     Active Substance: RANITIDINE
     Dates: start: 2013
  53. LIVALO [Concomitant]
     Active Substance: PITAVASTATIN CALCIUM
     Indication: BLOOD CHOLESTEROL DECREASED
     Dates: start: 2013, end: 2014
  54. MICARDIS [Concomitant]
     Active Substance: TELMISARTAN
     Indication: HYPERTENSION
     Dates: start: 2013
  55. TRAMADOL HYDROCHLORIDE. [Concomitant]
     Active Substance: TRAMADOL HYDROCHLORIDE
     Indication: ANALGESIC THERAPY
     Dates: start: 2014
  56. ACETAMINOPHEN-CODEINE [Concomitant]
     Active Substance: ACETAMINOPHEN\CODEINE PHOSPHATE
     Indication: ANALGESIC THERAPY
     Dates: start: 2014
  57. CALCITROL [Concomitant]
     Active Substance: CALCITRIOL
     Indication: PSORIASIS
     Dates: start: 2014, end: 2016
  58. CARVEDILOL. [Concomitant]
     Active Substance: CARVEDILOL
     Indication: HYPERTENSION
     Dates: start: 2015, end: 2016
  59. COLESTYRAMINE [Concomitant]
     Active Substance: CHOLESTYRAMINE
     Indication: BLOOD CHOLESTEROL DECREASED
     Dates: start: 2014, end: 2015
  60. DESOXIMETASONE. [Concomitant]
     Active Substance: DESOXIMETASONE
     Indication: STEROID THERAPY
     Dates: start: 2011, end: 2012
  61. FLUVIRIN NOS [Concomitant]
     Active Substance: INFLUENZA VIRUS VACCINE
     Indication: ANTIVIRAL PROPHYLAXIS
     Dates: start: 2017
  62. HYDROCORTISONE. [Concomitant]
     Active Substance: HYDROCORTISONE
     Indication: ANALGESIC THERAPY
     Dates: start: 2007, end: 2008
  63. LOVAZA [Concomitant]
     Active Substance: OMEGA-3-ACID ETHYL ESTERS
     Indication: VITAMIN A
     Dates: start: 2009, end: 2013
  64. METOCLOPRAMIDE. [Concomitant]
     Active Substance: METOCLOPRAMIDE
     Indication: GASTROOESOPHAGEAL REFLUX DISEASE
     Dates: start: 2015
  65. METRONIDAZOLE. [Concomitant]
     Active Substance: METRONIDAZOLE
     Indication: HYPERTENSION
     Dates: start: 2015
  66. NITROGLYCERIN. [Concomitant]
     Active Substance: NITROGLYCERIN
     Indication: CORONARY ARTERY DISEASE
     Dates: start: 2009
  67. NOVOLOG [Concomitant]
     Active Substance: INSULIN ASPART
     Indication: DIABETES MELLITUS
     Dates: start: 2014
  68. SODIUM BICARB [Concomitant]
     Active Substance: SODIUM BICARBONATE
     Indication: DYSPEPSIA
     Dates: start: 2016
  69. SPIRIVA [Concomitant]
     Active Substance: TIOTROPIUM BROMIDE MONOHYDRATE
     Indication: DYSPEPSIA
     Dates: start: 2006, end: 2007
  70. TRICOR [Concomitant]
     Active Substance: FENOFIBRATE
     Indication: BLOOD CHOLESTEROL DECREASED
     Dates: start: 2007, end: 2009
  71. ZETIA [Concomitant]
     Active Substance: EZETIMIBE
     Indication: BLOOD CHOLESTEROL DECREASED
     Dates: start: 2006, end: 2008
  72. ZOSTAVAX [Concomitant]
     Active Substance: VARICELLA-ZOSTER VIRUS STRAIN OKA/MERCK LIVE ANTIGEN
     Dates: start: 2016
  73. ASCORBIC ACID. [Concomitant]
     Active Substance: ASCORBIC ACID
     Dates: start: 2013
  74. DEXILANT [Suspect]
     Active Substance: DEXLANSOPRAZOLE
     Indication: GASTROOESOPHAGEAL REFLUX DISEASE
     Route: 065
     Dates: start: 2010, end: 2015
  75. LOSARTAN POTASSIUM. [Concomitant]
     Active Substance: LOSARTAN POTASSIUM
     Indication: BLOOD PRESSURE DIASTOLIC INCREASED
     Dates: start: 2013, end: 2014
  76. PLAVIX [Concomitant]
     Active Substance: CLOPIDOGREL BISULFATE
     Indication: ANTICOAGULANT THERAPY
     Dates: start: 2007, end: 2012
  77. ASPIRIN. [Concomitant]
     Active Substance: ASPIRIN
     Indication: ANTICOAGULANT THERAPY
     Dates: start: 2007, end: 2008
  78. BETAMETHASONE DIPROPIONATE. [Concomitant]
     Active Substance: BETAMETHASONE DIPROPIONATE
     Indication: HYPERTENSION
     Dates: start: 2007, end: 2009
  79. CEFUROXIME. [Concomitant]
     Active Substance: CEFUROXIME
     Indication: HYPERTENSION
     Dates: start: 2010
  80. COLESTYRAMINE [Concomitant]
     Active Substance: CHOLESTYRAMINE
     Indication: BLOOD CHOLESTEROL DECREASED
     Dates: start: 2017
  81. GLUMETZA [Concomitant]
     Active Substance: METFORMIN HYDROCHLORIDE
     Indication: DIABETES MELLITUS
     Dates: start: 2011, end: 2013
  82. HUMIRA [Concomitant]
     Active Substance: ADALIMUMAB
     Indication: PSORIASIS
     Dates: start: 2011, end: 2013
  83. HUMIRA [Concomitant]
     Active Substance: ADALIMUMAB
     Indication: PSORIASIS
     Dates: start: 2017
  84. JANUMET [Concomitant]
     Active Substance: METFORMIN HYDROCHLORIDE\SITAGLIPTIN PHOSPHATE
     Indication: DIABETES MELLITUS
     Dates: start: 2007, end: 2013
  85. METOPROLOL TARTRATE. [Concomitant]
     Active Substance: METOPROLOL TARTRATE
     Indication: HYPERTENSION
     Dates: start: 2007, end: 2008
  86. METOPROLOL TARTRATE. [Concomitant]
     Active Substance: METOPROLOL TARTRATE
     Indication: HYPERTENSION
     Dates: start: 2015
  87. NIFEDIPINE. [Concomitant]
     Active Substance: NIFEDIPINE
     Indication: HYPERTENSION
     Dates: start: 2016
  88. ZETIA [Concomitant]
     Active Substance: EZETIMIBE
     Indication: BLOOD CHOLESTEROL DECREASED
     Dates: start: 2014
  89. OMEPRAZOLE. [Suspect]
     Active Substance: OMEPRAZOLE
     Indication: GASTROOESOPHAGEAL REFLUX DISEASE
     Dosage: GENERIC
     Route: 065
     Dates: start: 2006, end: 2017
  90. NEOMYCIN. [Concomitant]
     Active Substance: NEOMYCIN
     Indication: ANTIBIOTIC THERAPY
     Dates: start: 2014
  91. TRAMADOL HYDROCHLORIDE. [Concomitant]
     Active Substance: TRAMADOL HYDROCHLORIDE
     Indication: ANALGESIC THERAPY
     Dates: start: 2014, end: 2015
  92. AZITHROMYCIN ANHYDROUS. [Concomitant]
     Active Substance: AZITHROMYCIN ANHYDROUS
     Indication: BLOOD CHOLESTEROL DECREASED
     Dates: start: 2008, end: 2009
  93. CEFALEXIN [Concomitant]
     Active Substance: CEPHALEXIN
     Indication: ARTHRITIS
     Dates: start: 2007
  94. ENALAPRIL MALEATE. [Concomitant]
     Active Substance: ENALAPRIL MALEATE
     Indication: HYPERTENSION
     Dates: start: 2006, end: 2008
  95. FLUCONAZOLE. [Concomitant]
     Active Substance: FLUCONAZOLE
     Indication: FUNGAL INFECTION
     Dates: start: 2007
  96. KLOR-CON [Concomitant]
     Active Substance: POTASSIUM CHLORIDE
     Indication: MINERAL SUPPLEMENTATION
     Dates: start: 2010
  97. LEVOXYL [Concomitant]
     Active Substance: LEVOTHYROXINE SODIUM
     Indication: HYPOTHYROIDISM
     Dates: start: 2011, end: 2013
  98. MEGESTROL ACETATE. [Concomitant]
     Active Substance: MEGESTROL ACETATE
     Dates: start: 2014, end: 2016
  99. NITROGLYCERIN. [Concomitant]
     Active Substance: NITROGLYCERIN
     Indication: CORONARY ARTERY DISEASE
     Dates: start: 2015
  100. NYSTATIN. [Concomitant]
     Active Substance: NYSTATIN
     Indication: FUNGAL INFECTION
     Dates: start: 2014
  101. PAROXETINE HYDROCHLORIDE. [Concomitant]
     Active Substance: PAROXETINE HYDROCHLORIDE
     Indication: DEPRESSION
     Dates: start: 2014
  102. PREDNISONE. [Concomitant]
     Active Substance: PREDNISONE
     Indication: DIABETES MELLITUS
     Dates: start: 2015, end: 2016
  103. LISINOPRIL. [Concomitant]
     Active Substance: LISINOPRIL
     Indication: HYPERTENSION
     Dates: start: 2008, end: 2011
  104. AMLODIPINE BESYLATE-BENAZEPRIL [Concomitant]
     Indication: HYPERTENSION
     Dates: start: 2008, end: 2013
  105. BETAMETHASONE DIPROPIONATE. [Concomitant]
     Active Substance: BETAMETHASONE DIPROPIONATE
     Indication: HYPERTENSION
     Dates: start: 2011, end: 2013
  106. DOVONEX [Concomitant]
     Active Substance: CALCIPOTRIENE
     Indication: PSORIASIS
     Dates: start: 2006
  107. FLUCONAZOLE. [Concomitant]
     Active Substance: FLUCONAZOLE
     Indication: FUNGAL INFECTION
     Dates: start: 2012, end: 2013
  108. FLUVIRIN NOS [Concomitant]
     Active Substance: INFLUENZA VIRUS VACCINE
     Indication: ANTIVIRAL PROPHYLAXIS
     Dates: start: 2012, end: 2013
  109. HUMIRA [Concomitant]
     Active Substance: ADALIMUMAB
     Indication: PSORIASIS
     Dates: start: 2013
  110. HYDRALAZINE [Concomitant]
     Active Substance: HYDRALAZINE HYDROCHLORIDE
     Indication: HYPERTENSION
     Dates: start: 2017
  111. HYDROCODONE-ACETAMINOPHEN [Concomitant]
     Active Substance: ACETAMINOPHEN\HYDROCODONE
     Indication: ANALGESIC THERAPY
     Dates: start: 2014
  112. LANTUS SOLOSTAR [Concomitant]
     Active Substance: INSULIN GLARGINE
     Indication: DIABETES MELLITUS
     Dates: start: 2009, end: 2014
  113. NYSTATIN. [Concomitant]
     Active Substance: NYSTATIN
     Indication: FUNGAL INFECTION
     Dates: start: 2015
  114. POLYETHYLENE GLYCOL [Concomitant]
     Active Substance: POLYETHYLENE GLYCOLS
     Indication: LAXATIVE SUPPORTIVE CARE
     Dates: start: 2014
  115. SIMCOR [Concomitant]
     Active Substance: NIACIN\SIMVASTATIN
     Indication: BLOOD CHOLESTEROL DECREASED
     Dates: start: 2006
  116. VITAMIN D2NITAMIN D3 [Concomitant]
     Indication: VITAMIN SUPPLEMENTATION
     Dates: start: 2015
  117. VYTORIN [Concomitant]
     Active Substance: EZETIMIBE\SIMVASTATIN
     Indication: BLOOD CHOLESTEROL DECREASED
     Dates: start: 2007, end: 2008
  118. ZENPEP [Concomitant]
     Active Substance: PANCRELIPASE AMYLASE\PANCRELIPASE LIPASE\PANCRELIPASE PROTEASE
     Dates: start: 2016
  119. NEOMYCIN. [Concomitant]
     Active Substance: NEOMYCIN
     Indication: ANTIBIOTIC THERAPY
     Dates: start: 2012
  120. SULFAMETHOXAZOLE [Concomitant]
     Active Substance: SULFAMETHOXAZOLE
     Indication: ANTIBIOTIC THERAPY
     Dates: start: 2014
  121. AMOXICILLIN. [Concomitant]
     Active Substance: AMOXICILLIN
     Indication: HYPERTENSION
     Dates: start: 2013
  122. CILOSTAZOL. [Concomitant]
     Active Substance: CILOSTAZOL
     Indication: BLOOD CHOLESTEROL DECREASED
     Dates: start: 2014, end: 2015
  123. BETAMETHASONE+CLOTRIMAZOLE [Concomitant]
     Indication: FUNGAL INFECTION
     Dates: start: 2012, end: 2013
  124. BETAMETHASONE+CLOTRIMAZOLE [Concomitant]
     Indication: FUNGAL INFECTION
     Dates: start: 2017
  125. CODEINE SULFATE. [Concomitant]
     Active Substance: CODEINE SULFATE
     Indication: ANALGESIC THERAPY
     Dates: start: 2017
  126. FERROUS SULFATE. [Concomitant]
     Active Substance: FERROUS SULFATE
     Indication: MINERAL SUPPLEMENTATION
     Dates: start: 2015
  127. FLUCONAZOLE. [Concomitant]
     Active Substance: FLUCONAZOLE
     Indication: FUNGAL INFECTION
     Dates: start: 2017
  128. FUROSEMIDE. [Concomitant]
     Active Substance: FUROSEMIDE
     Indication: DIURETIC THERAPY
     Dates: start: 2007, end: 2008
  129. FUROSEMIDE. [Concomitant]
     Active Substance: FUROSEMIDE
     Indication: DIURETIC THERAPY
     Dates: start: 2013
  130. HYDRALAZINE [Concomitant]
     Active Substance: HYDRALAZINE HYDROCHLORIDE
     Indication: HYPERTENSION
     Dates: start: 2015
  131. METRONIDAZOLE. [Concomitant]
     Active Substance: METRONIDAZOLE
     Indication: HYPERTENSION
     Dates: start: 2014, end: 2015
  132. PANTOPRAZOLE SODIUM. [Concomitant]
     Active Substance: PANTOPRAZOLE SODIUM
     Indication: GASTROOESOPHAGEAL REFLUX DISEASE
     Dates: start: 2012, end: 2016
  133. SYNTHROID [Concomitant]
     Active Substance: LEVOTHYROXINE SODIUM
     Indication: HYPOTHYROIDISM
     Dates: start: 2011, end: 2014
  134. TRIAMCINOLONE ACETONIDE. [Concomitant]
     Active Substance: TRIAMCINOLONE ACETONIDE
     Indication: STEROID THERAPY
     Dates: start: 2006

REACTIONS (5)
  - Acute kidney injury [Not Recovered/Not Resolved]
  - End stage renal disease [Not Recovered/Not Resolved]
  - Chronic kidney disease [Not Recovered/Not Resolved]
  - Renal tubular necrosis [Unknown]
  - Renal failure [Unknown]

NARRATIVE: CASE EVENT DATE: 20141218
